FAERS Safety Report 10786548 (Version 1)
Quarter: 2015Q1

REPORT INFORMATION
  Report Type: Spontaneous
  Country: FR (occurrence: FR)
  Receive Date: 20150211
  Receipt Date: 20150211
  Transmission Date: 20150721
  Serious: Yes (Hospitalization)
  Sender: FDA-Public Use
  Company Number: FR-RB PHARMACEUTICALS LIMITED-RB-73933-2014

PATIENT
  Age: 27 Year
  Sex: Male

DRUGS (4)
  1. SUBUTEX [Suspect]
     Active Substance: BUPRENORPHINE HYDROCHLORIDE
     Indication: DRUG DEPENDENCE
     Dosage: 4 MG DAILY
     Route: 060
     Dates: end: 201207
  2. SUBUTEX [Suspect]
     Active Substance: BUPRENORPHINE HYDROCHLORIDE
     Dosage: 4 MG DAILY
     Route: 051
  3. BUPRENORPHINE BIOGARAN [Suspect]
     Active Substance: BUPRENORPHINE HYDROCHLORIDE
     Dosage: 4 MG DAILY
     Route: 051
  4. BUPRENORPHINE BIOGARAN [Suspect]
     Active Substance: BUPRENORPHINE HYDROCHLORIDE
     Indication: DRUG DEPENDENCE
     Dosage: 4 MG DAILY
     Route: 060
     Dates: start: 201208, end: 20141124

REACTIONS (4)
  - Surgery [None]
  - Incorrect route of drug administration [None]
  - Intentional product misuse [Unknown]
  - Endocarditis staphylococcal [Unknown]

NARRATIVE: CASE EVENT DATE: 201405
